FAERS Safety Report 4863966-1 (Version None)
Quarter: 2005Q4

REPORT INFORMATION
  Report Type: 
  Country: None (occurrence: None)
  Receive Date: 20051219
  Receipt Date: 20051206
  Transmission Date: 20060501
  Serious: Yes (Hospitalization)
  Sender: FDA-Public Use
  Company Number: HQWYE895107DEC05

PATIENT
  Age: 80 Year
  Sex: Male

DRUGS (11)
  1. CORDARONE [Suspect]
     Dosage: 200 MG 1X PER 1 DAY
     Route: 048
     Dates: start: 20050115
  2. ASPIRIN [Suspect]
     Dosage: 100 MG 1X PER 1 DAY
     Route: 048
     Dates: start: 20050101
  3. FRESUBIN (CARBOHYDRATES NOS/FATTY ACIDS NOS/MINERALS NOS/PROTEINS NOS/ [Suspect]
     Dosage: 1000 ML 1X PER 1 DAY
     Route: 048
     Dates: start: 20050101, end: 20050316
  4. MARCUMAR [Suspect]
     Dosage: 1/2 OF A 3 MG TABLET
     Route: 048
     Dates: start: 20050301, end: 20050323
  5. MARCUMAR [Suspect]
     Dosage: 1/2 OF A 3 MG TABLET
     Route: 048
     Dates: start: 20050325
  6. CITALOPRAM HYDROBROMIDE [Concomitant]
  7. COVERSUM (PERINDOPRIL) [Concomitant]
  8. ACETAMINOPHEN [Concomitant]
  9. SINEMET CR [Concomitant]
  10. METAMUCIL-2 [Concomitant]
  11. ECOFANAC (DICLOFENAC SODIUM) [Concomitant]

REACTIONS (3)
  - CEREBROVASCULAR ACCIDENT [None]
  - INTERNATIONAL NORMALISED RATIO INCREASED [None]
  - MUSCLE HAEMORRHAGE [None]
